FAERS Safety Report 7768786-6 (Version None)
Quarter: 2011Q3

REPORT INFORMATION
  Report Type: 
  Country: None (occurrence: None)
  Receive Date: 20110922
  Receipt Date: 20110411
  Transmission Date: 20111222
  Serious: No
  Sender: FDA-Public Use
  Company Number: US-ASTRAZENECA-2011SE20464

PATIENT
  Age: 13 Year
  Sex: Female

DRUGS (9)
  1. PROZAC [Concomitant]
  2. SEROQUEL [Suspect]
     Route: 048
     Dates: start: 20110301
  3. SEROQUEL [Suspect]
     Indication: BIPOLAR DISORDER
     Route: 048
     Dates: start: 20110226
  4. PROZAC [Concomitant]
  5. SEROQUEL [Suspect]
     Route: 048
     Dates: start: 20110301
  6. PROZAC [Concomitant]
  7. SEROQUEL [Suspect]
     Route: 048
     Dates: start: 20110301
  8. SEROQUEL [Suspect]
     Route: 048
     Dates: start: 20110301
  9. SEROQUEL [Suspect]
     Indication: MAJOR DEPRESSION
     Route: 048
     Dates: start: 20110226

REACTIONS (6)
  - SOMNOLENCE [None]
  - THERAPEUTIC RESPONSE UNEXPECTED [None]
  - WEIGHT INCREASED [None]
  - HUNGER [None]
  - ENERGY INCREASED [None]
  - LOGORRHOEA [None]
